FAERS Safety Report 20235224 (Version 1)
Quarter: 2021Q4

REPORT INFORMATION
  Report Type: Spontaneous
  Country: US (occurrence: US)
  Receive Date: 20211228
  Receipt Date: 20211228
  Transmission Date: 20220303
  Serious: Yes (Other)
  Sender: FDA-Public Use
  Company Number: US-ASTELLAS-2021US040179

PATIENT
  Age: 74 Year
  Sex: Male

DRUGS (3)
  1. PADCEV [Suspect]
     Active Substance: ENFORTUMAB VEDOTIN-EJFV
     Indication: Transitional cell carcinoma metastatic
     Dosage: 1.25 MG/KG, CYCLIC (ON DAYS 1, 8, AND 15 OF A 28-DAY CYCLE)
     Route: 042
     Dates: start: 20200518, end: 20200602
  2. PADCEV [Suspect]
     Active Substance: ENFORTUMAB VEDOTIN-EJFV
     Dosage: 1 MG/KG, CYCLIC (ON DAYS 1, 8, AND 15 OF A 28-DAY CYCLE)
     Route: 042
     Dates: start: 20200629, end: 20201020
  3. PADCEV [Suspect]
     Active Substance: ENFORTUMAB VEDOTIN-EJFV
     Dosage: 0.75 MG/KG, CYCLIC (ON DAYS 1, 8, AND 15 OF A 28-DAY CYCLE)
     Route: 042
     Dates: start: 20201027, end: 20210126

REACTIONS (1)
  - Neuropathy peripheral [Recovered/Resolved]

NARRATIVE: CASE EVENT DATE: 20200602
